FAERS Safety Report 8184360-4 (Version None)
Quarter: 2012Q1

REPORT INFORMATION
  Report Type: 
  Country: None (occurrence: None)
  Receive Date: 20120207
  Receipt Date: 20110203
  Transmission Date: 20120608
  Serious: Yes (Other)
  Sender: FDA-Public Use
  Company Number: 2011027543

PATIENT
  Sex: Female
  Weight: 58.0604 kg

DRUGS (2)
  1. VIVAGLOBIN [Suspect]
     Indication: IMMUNODEFICIENCY COMMON VARIABLE
     Dosage: (40 ML 1X/WEEK SUBCUTANEOUS)
     Route: 058
     Dates: start: 20101201
  2. VIVAGLOBIN [Suspect]

REACTIONS (5)
  - MIGRAINE [None]
  - DECREASED APPETITE [None]
  - DYSPNOEA [None]
  - INSOMNIA [None]
  - DEHYDRATION [None]
